FAERS Safety Report 6868530-0 (Version None)
Quarter: 2010Q3

REPORT INFORMATION
  Report Type: 
  Country: None (occurrence: None)
  Receive Date: 20100722
  Receipt Date: 20080602
  Transmission Date: 20110219
  Serious: No
  Sender: FDA-Public Use
  Company Number: US-PFIZER INC-2008046818

PATIENT
  Age: 45 Year
  Sex: Male

DRUGS (3)
  1. CHANTIX [Suspect]
  2. PERCOCET [Suspect]
  3. OXYMORPHONE [Concomitant]

REACTIONS (3)
  - DEPRESSION [None]
  - NAUSEA [None]
  - PRURITUS [None]
